FAERS Safety Report 4455783-1 (Version None)
Quarter: 2004Q3

REPORT INFORMATION
  Report Type: 
  Country: None (occurrence: None)
  Receive Date: 20040917
  Receipt Date: 20040903
  Transmission Date: 20050211
  Serious: Yes (Hospitalization)
  Sender: FDA-Public Use
  Company Number: 04P-151-0272624-00

PATIENT
  Age: 42 Year
  Sex: Male

DRUGS (2)
  1. BIAXIN [Suspect]
     Indication: BRONCHITIS
     Dosage: 500 MG, 1 IN 1 D, PER ORAL
     Route: 048
     Dates: start: 20040813
  2. BIAXIN [Suspect]
     Indication: BRONCHOSPASM
     Dosage: 500 MG, 1 IN 1 D, PER ORAL
     Route: 048
     Dates: start: 20040813

REACTIONS (4)
  - ABDOMINAL PAIN UPPER [None]
  - ABDOMINAL RIGIDITY [None]
  - DIARRHOEA [None]
  - DRUG TOLERANCE DECREASED [None]
